FAERS Safety Report 18243661 (Version 1)
Quarter: 2020Q3

REPORT INFORMATION
  Report Type: Spontaneous
  Country: IN (occurrence: IN)
  Receive Date: 20200908
  Receipt Date: 20200908
  Transmission Date: 20201103
  Serious: Yes (Hospitalization)
  Sender: FDA-Public Use
  Company Number: IN-AMNEAL PHARMACEUTICALS-2020-AMRX-02685

PATIENT
  Age: 21 Year
  Sex: Female

DRUGS (2)
  1. THEOPHYLLINE [Suspect]
     Active Substance: THEOPHYLLINE ANHYDROUS
     Indication: PRODUCT USED FOR UNKNOWN INDICATION
     Dosage: 3 GRAM
     Route: 048
  2. ALBUTEROL. [Suspect]
     Active Substance: ALBUTEROL
     Indication: PRODUCT USED FOR UNKNOWN INDICATION
     Dosage: 40 MILLIGRAM
     Route: 048

REACTIONS (5)
  - Metabolic acidosis [Recovering/Resolving]
  - Overdose [Recovering/Resolving]
  - Hypocalcaemia [Recovering/Resolving]
  - Distributive shock [Recovering/Resolving]
  - Hypokalaemia [Recovering/Resolving]
